FAERS Safety Report 4353836-X (Version None)
Quarter: 2004Q2

REPORT INFORMATION
  Report Type: 
  Country: None (occurrence: None)
  Receive Date: 20040430
  Receipt Date: 20040420
  Transmission Date: 20050107
  Serious: Yes (Other)
  Sender: FDA-Public Use
  Company Number: CA-JNJFOC-20040302774

PATIENT
  Age: 83 Year
  Sex: Male
  Weight: 77 kg

DRUGS (9)
  1. REMICADE [Suspect]
     Indication: RHEUMATOID ARTHRITIS
     Dosage: 300 MG INTRAVENOUS
     Route: 042
     Dates: start: 20031002, end: 20031002
  2. PREDNISONE [Concomitant]
  3. PLAQUENIL [Concomitant]
  4. ACETYLSALICYLIC ACID SRT [Concomitant]
  5. NOVO HYDRAZIDE (HYDROCHLOROTHIAZIDE) [Concomitant]
  6. FOLIC ACID [Concomitant]
  7. VITAMIN D [Concomitant]
  8. TYLENOL (PANADEINE CO) [Concomitant]
  9. DIGOXIN [Concomitant]

REACTIONS (3)
  - ATRIAL FIBRILLATION [None]
  - EJECTION FRACTION DECREASED [None]
  - ELECTROCARDIOGRAM T WAVE AMPLITUDE DECREASED [None]
